FAERS Safety Report 10171390 (Version 3)
Quarter: 2014Q3

REPORT INFORMATION
  Report Type: Spontaneous
  Country: GB (occurrence: GB)
  Receive Date: 20140514
  Receipt Date: 20140714
  Transmission Date: 20150326
  Serious: Yes (Other)
  Sender: FDA-Public Use
  Company Number: GB-BAYER-2014-053766

PATIENT
  Age: 21 Year
  Sex: Female

DRUGS (1)
  1. CANESTEN PESSARY [Suspect]
     Active Substance: CLOTRIMAZOLE
     Indication: CANDIDA INFECTION
     Dosage: UNK
     Dates: start: 201404

REACTIONS (2)
  - Pelvic pain [None]
  - Uterine haemorrhage [None]

NARRATIVE: CASE EVENT DATE: 201404
